FAERS Safety Report 8919221 (Version 1)
Quarter: 2012Q4

REPORT INFORMATION
  Report Type: 
  Country: DE (occurrence: DE)
  Receive Date: 20121121
  Receipt Date: 20121121
  Transmission Date: 20130627
  Serious: Yes (Hospitalization)
  Sender: FDA-Public Use
  Company Number: DE-MYLANLABS-2012S1023382

PATIENT
  Age: 15 Year
  Sex: Female

DRUGS (1)
  1. CLARITHROMYCIN [Suspect]
     Indication: PRODUCT USED FOR UNKNOWN INDICATION
     Dosage: upto 10 tablets
     Route: 048

REACTIONS (3)
  - Drug abuse [Unknown]
  - Overdose [Unknown]
  - Vomiting [Unknown]
